FAERS Safety Report 24328899 (Version 1)
Quarter: 2024Q3

REPORT INFORMATION
  Report Type: Report from Study
  Country: IE (occurrence: IE)
  Receive Date: 20240917
  Receipt Date: 20240917
  Transmission Date: 20241017
  Serious: Yes (Other)
  Sender: MYLAN
  Company Number: IE-MYLANLABS-2024M1084146

PATIENT
  Age: 46 Year
  Sex: Male

DRUGS (20)
  1. GABAPENTIN [Suspect]
     Active Substance: GABAPENTIN
     Indication: Post-traumatic headache
     Dosage: UNK
     Route: 065
  2. GABAPENTIN [Suspect]
     Active Substance: GABAPENTIN
     Indication: Migraine prophylaxis
  3. MIRTAZAPINE [Suspect]
     Active Substance: MIRTAZAPINE
     Indication: Post-traumatic headache
     Dosage: UNK
     Route: 065
  4. MIRTAZAPINE [Suspect]
     Active Substance: MIRTAZAPINE
     Indication: Migraine prophylaxis
  5. PREGABALIN [Suspect]
     Active Substance: PREGABALIN
     Indication: Post-traumatic headache
     Dosage: UNK
     Route: 065
  6. PREGABALIN [Suspect]
     Active Substance: PREGABALIN
     Indication: Migraine prophylaxis
  7. CANDESARTAN [Suspect]
     Active Substance: CANDESARTAN
     Indication: Post-traumatic headache
     Dosage: UNK
     Route: 065
  8. CANDESARTAN [Suspect]
     Active Substance: CANDESARTAN
     Indication: Migraine prophylaxis
  9. AMITRIPTYLINE [Suspect]
     Active Substance: AMITRIPTYLINE
     Indication: Post-traumatic headache
     Dosage: UNK
     Route: 065
  10. AMITRIPTYLINE [Suspect]
     Active Substance: AMITRIPTYLINE
     Indication: Migraine prophylaxis
  11. BOTOX [Suspect]
     Active Substance: ONABOTULINUMTOXINA
     Indication: Post-traumatic headache
     Dosage: UNK
     Route: 065
  12. BOTOX [Suspect]
     Active Substance: ONABOTULINUMTOXINA
     Indication: Migraine prophylaxis
  13. NEBIVOLOL [Suspect]
     Active Substance: NEBIVOLOL
     Indication: Post-traumatic headache
     Dosage: UNK
     Route: 065
  14. NEBIVOLOL [Suspect]
     Active Substance: NEBIVOLOL
     Indication: Migraine prophylaxis
  15. PIZOTYLINE [Suspect]
     Active Substance: PIZOTYLINE
     Indication: Post-traumatic headache
     Dosage: UNK
     Route: 065
  16. PIZOTYLINE [Suspect]
     Active Substance: PIZOTYLINE
     Indication: Migraine prophylaxis
  17. PROPRANOLOL [Suspect]
     Active Substance: PROPRANOLOL HYDROCHLORIDE
     Indication: Post-traumatic headache
     Dosage: UNK
     Route: 065
  18. PROPRANOLOL [Suspect]
     Active Substance: PROPRANOLOL HYDROCHLORIDE
     Indication: Migraine prophylaxis
  19. TOPIRAMATE [Suspect]
     Active Substance: TOPIRAMATE
     Indication: Post-traumatic headache
     Dosage: UNK
     Route: 065
  20. TOPIRAMATE [Suspect]
     Active Substance: TOPIRAMATE
     Indication: Migraine prophylaxis

REACTIONS (2)
  - Treatment failure [Unknown]
  - Off label use [Unknown]
